FAERS Safety Report 7394397-0 (Version None)
Quarter: 2011Q2

REPORT INFORMATION
  Report Type: 
  Country: None (occurrence: None)
  Receive Date: 20110405
  Receipt Date: 20110324
  Transmission Date: 20111010
  Serious: Yes (Death)
  Sender: FDA-Public Use
  Company Number: DE-ROCHE-761473

PATIENT
  Sex: Male
  Weight: 90 kg

DRUGS (4)
  1. PEGINTERFERON ALFA-2A [Suspect]
     Route: 058
     Dates: start: 20100325, end: 20101015
  2. MIRTAZAPIN [Concomitant]
     Indication: DEPRESSION
  3. ACETAMINOPHEN [Concomitant]
  4. ZOPICLON [Concomitant]
     Indication: SLEEP DISORDER

REACTIONS (2)
  - DRUG INEFFECTIVE [None]
  - COMPLETED SUICIDE [None]
